FAERS Safety Report 8871032 (Version 1)
Quarter: 2012Q4

REPORT INFORMATION
  Report Type: Spontaneous
  Country: US (occurrence: None)
  Receive Date: 20121025
  Receipt Date: 20121025
  Transmission Date: 20130627
  Serious: Yes (Other)
  Sender: FDA-Public Use
  Company Number: OPGN20120020

PATIENT
  Age: 14 Year
  Sex: Female

DRUGS (1)
  1. OXYMORPHONE HYDROCHLORIDE [Suspect]
     Indication: PRODUCT USED FOR UNKNOWN INDICATION

REACTIONS (8)
  - Deafness [None]
  - Mental status changes [None]
  - Lethargy [None]
  - Tachycardia [None]
  - Renal impairment [None]
  - Drug screen positive [None]
  - Troponin increased [None]
  - Transaminases increased [None]
